FAERS Safety Report 6011138-X (Version None)
Quarter: 2008Q4

REPORT INFORMATION
  Report Type: 
  Country: None (occurrence: None)
  Receive Date: 20081218
  Receipt Date: 20080430
  Transmission Date: 20090506
  Serious: Yes (Hospitalization, Other)
  Sender: FDA-Public Use
  Company Number: US-AMGEN-QUU274533

PATIENT
  Sex: Female

DRUGS (9)
  1. ENBREL [Suspect]
     Indication: RHEUMATOID ARTHRITIS
     Route: 058
     Dates: start: 20020101
  2. METHOTREXATE [Concomitant]
     Dates: start: 20071010
  3. GLIPIZIDE [Concomitant]
  4. ENALAPRIL MALEATE [Concomitant]
  5. HYDROCHLOROTHIAZIDE [Concomitant]
  6. PANTOPRAZOLE SODIUM [Concomitant]
  7. CLOTRIMAZOLE [Concomitant]
  8. CALCIUM WITH VITAMIN D [Concomitant]
  9. WARFARIN SODIUM [Concomitant]

REACTIONS (9)
  - ARTHRALGIA [None]
  - CHILLS [None]
  - JOINT STIFFNESS [None]
  - OEDEMA PERIPHERAL [None]
  - RHEUMATOID ARTHRITIS [None]
  - RHEUMATOID NODULE [None]
  - SKIN ULCER [None]
  - SYNOVITIS [None]
  - THROMBOSIS [None]
